FAERS Safety Report 9469747 (Version 5)
Quarter: 2013Q4

REPORT INFORMATION
  Report Type: Report from Study
  Country: NZ (occurrence: NZ)
  Receive Date: 20130822
  Receipt Date: 20131008
  Transmission Date: 20140711
  Serious: Yes (Other)
  Sender: FDA-Public Use
  Company Number: PHHY2013NZ089648

PATIENT
  Sex: Male
  Weight: 103 kg

DRUGS (2)
  1. CLOZARIL [Suspect]
     Indication: SCHIZOPHRENIA
     Dosage: 300 MG
     Dates: start: 20040524
  2. CLOZARIL [Suspect]
     Dosage: 100 MG, UNK
     Route: 048
     Dates: start: 2004

REACTIONS (28)
  - Hyperhidrosis [Unknown]
  - Urinary incontinence [Unknown]
  - Fatigue [Unknown]
  - Dizziness [Unknown]
  - Agitation [Unknown]
  - Nausea [Unknown]
  - Constipation [Unknown]
  - Salivary hypersecretion [Not Recovered/Not Resolved]
  - Antipsychotic drug level above therapeutic [Unknown]
  - Infection susceptibility increased [Unknown]
  - Schizophrenia, paranoid type [Unknown]
  - Toxicity to various agents [Unknown]
  - Drug abuse [Unknown]
  - Drug dependence [Unknown]
  - Diabetes mellitus [Unknown]
  - Weight increased [Unknown]
  - Folliculitis [Not Recovered/Not Resolved]
  - Papule [Unknown]
  - Acne [Not Recovered/Not Resolved]
  - Scar [Unknown]
  - Skin lesion [Not Recovered/Not Resolved]
  - Dermatillomania [Not Recovered/Not Resolved]
  - Grip strength decreased [Unknown]
  - Skin disorder [Unknown]
  - Skin odour abnormal [Unknown]
  - Eye irritation [Unknown]
  - Carbuncle [Unknown]
  - Drooling [Not Recovered/Not Resolved]
